FAERS Safety Report 7079881-1 (Version None)
Quarter: 2010Q4

REPORT INFORMATION
  Report Type: 
  Country: None (occurrence: None)
  Receive Date: 20101102
  Receipt Date: 20101026
  Transmission Date: 20110411
  Serious: Yes (Other)
  Sender: FDA-Public Use
  Company Number: US-SANOFI-AVENTIS-2010SA065832

PATIENT
  Sex: Male

DRUGS (2)
  1. AMARYL [Suspect]
     Route: 065
  2. JANUVIA [Suspect]

REACTIONS (2)
  - BLOOD GLUCOSE INCREASED [None]
  - CARDIAC OPERATION [None]
